FAERS Safety Report 10694618 (Version 1)
Quarter: 2015Q1

REPORT INFORMATION
  Report Type: Report from Study
  Country: IT (occurrence: IT)
  Receive Date: 20150107
  Receipt Date: 20150107
  Transmission Date: 20150721
  Serious: Yes (Other)
  Sender: FDA-Public Use
  Company Number: IT-ROCHE-1517622

PATIENT

DRUGS (3)
  1. CISPLATIN. [Suspect]
     Active Substance: CISPLATIN
     Indication: NEUROENDOCRINE CARCINOMA
     Dosage: ON DAY 1, 2, 3 EVERY 21 DAY
     Route: 065
  2. DACARBAZINE. [Suspect]
     Active Substance: DACARBAZINE
     Indication: NEUROENDOCRINE CARCINOMA
     Dosage: ON DAY 1, 2, 3 EVERY 21 DAYS
     Route: 065
  3. CAPECITABINE. [Suspect]
     Active Substance: CAPECITABINE
     Indication: NEUROENDOCRINE CARCINOMA
     Dosage: ON DAY 1, 2, 3, 4, 5 AFTER EVERY 21 DAYS
     Route: 065

REACTIONS (4)
  - Renal failure [Unknown]
  - Haematotoxicity [Unknown]
  - Hepatic failure [Unknown]
  - Asthenia [Unknown]
